FAERS Safety Report 8403831-6 (Version None)
Quarter: 2012Q2

REPORT INFORMATION
  Report Type: 
  Country: None (occurrence: None)
  Receive Date: 20120601
  Receipt Date: 20120516
  Transmission Date: 20120825
  Serious: No
  Sender: FDA-Public Use
  Company Number: US-ASTRAZENECA-2011SE46132

PATIENT
  Age: 71 Year
  Sex: Female

DRUGS (7)
  1. CRESTOR [Suspect]
     Route: 048
  2. LIPITOR [Concomitant]
  3. FISH OIL [Concomitant]
  4. TOPROL-XL [Suspect]
     Route: 048
  5. WELCHOL [Concomitant]
  6. NEXIUM [Suspect]
     Route: 048
  7. SIMVASTATIN [Concomitant]

REACTIONS (7)
  - BACK PAIN [None]
  - MALAISE [None]
  - ARTHRALGIA [None]
  - INTENTIONAL DRUG MISUSE [None]
  - MYALGIA [None]
  - DIZZINESS [None]
  - BLOOD CHOLESTEROL INCREASED [None]
